FAERS Safety Report 21252250 (Version 1)
Quarter: 2022Q3

REPORT INFORMATION
  Report Type: Spontaneous
  Country: US (occurrence: US)
  Receive Date: 20220825
  Receipt Date: 20220825
  Transmission Date: 20221026
  Serious: Yes (Other)
  Sender: FDA-Public Use
  Company Number: US-CADILA HEALTHCARE LIMITED-US-ZYDUS-081624

PATIENT

DRUGS (2)
  1. TRAMADOL [Interacting]
     Active Substance: TRAMADOL
     Indication: Pain
     Dosage: 100 MILLIGRAM
     Route: 065
  2. HERBALS\MITRAGYNINE [Interacting]
     Active Substance: HERBALS\MITRAGYNINE
     Indication: Pain
     Dosage: UNK
     Route: 065

REACTIONS (5)
  - Drug interaction [Unknown]
  - Hypokalaemia [Recovered/Resolved]
  - Electrocardiogram QT prolonged [Recovered/Resolved]
  - Seizure [Recovered/Resolved]
  - Cognitive disorder [Recovered/Resolved]
